FAERS Safety Report 4851805-4 (Version None)
Quarter: 2005Q4

REPORT INFORMATION
  Report Type: 
  Country: None (occurrence: None)
  Receive Date: 20051209
  Receipt Date: 20051128
  Transmission Date: 20060501
  Serious: Yes (Other)
  Sender: FDA-Public Use
  Company Number: 219817

PATIENT
  Age: 37 Year
  Sex: Male
  Weight: 96 kg

DRUGS (6)
  1. RITUXAN          (RITUXIMAB) [Suspect]
     Indication: NON-HODGKIN'S LYMPHOMA
     Dosage: 750 MG, Q3W, INTRAVENOUS
     Route: 042
     Dates: start: 20030808, end: 20040928
  2. LOXONIN                    (LOXOPROFEN SODIUM) [Concomitant]
  3. CARBOPLATIN [Suspect]
     Indication: NON-HODGKIN'S LYMPHOMA
     Dosage: 500 MG, Q3W, INTRAVENOUS
     Route: 042
     Dates: start: 20030808, end: 20040929
  4. ETOPOSIDE [Suspect]
     Indication: NON-HODGKIN'S LYMPHOMA
     Dosage: 200 MG, Q3W, INTRAVENOUS
     Route: 042
     Dates: start: 20030808, end: 20041001
  5. RESTAMIN (CHLORPHENIRAMINE MALEATE) [Concomitant]
  6. IRINOTECAN HCL [Suspect]
     Indication: NON-HODGKIN'S LYMPHOMA
     Dosage: 60 MG, Q3W, INTRAVENOUS
     Route: 042
     Dates: start: 20030808, end: 20041001

REACTIONS (7)
  - ALANINE AMINOTRANSFERASE INCREASED [None]
  - BLOOD POTASSIUM DECREASED [None]
  - HAEMOGLOBIN DECREASED [None]
  - NEUTROPENIA [None]
  - NON-HODGKIN'S LYMPHOMA RECURRENT [None]
  - VOMITING [None]
  - WHITE BLOOD CELL COUNT DECREASED [None]
